FAERS Safety Report 10591181 (Version 2)
Quarter: 2014Q4

REPORT INFORMATION
  Report Type: Spontaneous
  Country: DE (occurrence: DE)
  Receive Date: 20141118
  Receipt Date: 20141201
  Transmission Date: 20150529
  Serious: Yes (Death)
  Sender: FDA-Public Use
  Company Number: GXKR2014DE004241

PATIENT
  Age: 65 Year
  Sex: Female
  Weight: 73 kg

DRUGS (6)
  1. CARBOPLATIN HEXAL [Suspect]
     Active Substance: CARBOPLATIN
     Indication: NON-SMALL CELL LUNG CANCER METASTATIC
     Dosage: 580 MG, UNK
     Route: 042
     Dates: start: 20141113, end: 20141113
  2. PANTOZOL [Concomitant]
     Active Substance: PANTOPRAZOLE SODIUM
     Indication: PROPHYLAXIS
     Dosage: 40 MG, QD
     Route: 048
     Dates: start: 20141105, end: 20141113
  3. PACLITAXEL. [Concomitant]
     Active Substance: PACLITAXEL
     Indication: NON-SMALL CELL LUNG CANCER
     Dosage: 290 MG, UNK
     Route: 042
  4. CODICOMPREN [Concomitant]
     Indication: COUGH
     Dosage: 50 MG, DU
     Route: 048
     Dates: start: 20141107, end: 20141113
  5. ARIXTRA [Concomitant]
     Active Substance: FONDAPARINUX SODIUM
     Indication: THROMBOSIS PROPHYLAXIS
     Dosage: 2.5 MG, UNK
     Route: 058
     Dates: start: 20141104, end: 20141113
  6. DEXAMETASON [Concomitant]
     Active Substance: DEXAMETHASONE
     Indication: ALLERGY PROPHYLAXIS
     Dosage: 20 MG, QD
     Route: 048
     Dates: start: 20141112, end: 20141113

REACTIONS (3)
  - Respiratory failure [Fatal]
  - Anaphylactic shock [Fatal]
  - Cardiovascular insufficiency [Fatal]

NARRATIVE: CASE EVENT DATE: 20141113
